FAERS Safety Report 9753398 (Version 2)
Quarter: 2013Q4

REPORT INFORMATION
  Report Type: Spontaneous
  Country: US (occurrence: US)
  Receive Date: 20131213
  Receipt Date: 20131216
  Transmission Date: 20140711
  Serious: Yes (Other)
  Sender: FDA-Public Use
  Company Number: US-TEVA-406184USA

PATIENT
  Age: 37 Year
  Sex: Female

DRUGS (1)
  1. PARAGARD 380A [Suspect]
     Indication: CONTRACEPTION
     Route: 015
     Dates: end: 20130520

REACTIONS (4)
  - Device dislocation [Recovered/Resolved]
  - Pain [Not Recovered/Not Resolved]
  - Complication of device insertion [Recovered/Resolved]
  - Dyspareunia [Unknown]
